FAERS Safety Report 9380835 (Version 1)
Quarter: 2013Q3

REPORT INFORMATION
  Report Type: Report from Study
  Country: TW (occurrence: TW)
  Receive Date: 20130702
  Receipt Date: 20130702
  Transmission Date: 20140515
  Serious: Yes (Hospitalization)
  Sender: FDA-Public Use
  Company Number: TW-SANOFI-AVENTIS-2013SA064808

PATIENT
  Age: 60 Year
  Sex: Male
  Weight: 62 kg

DRUGS (5)
  1. CLOPIDOGREL BISULFATE [Suspect]
     Indication: ACUTE CORONARY SYNDROME
     Route: 048
     Dates: start: 20121119
  2. ASPIRIN [Suspect]
     Indication: ACUTE CORONARY SYNDROME
     Route: 048
     Dates: start: 20121119
  3. CONCOR [Concomitant]
     Route: 065
  4. LIPITOR [Concomitant]
     Route: 065
  5. BLOPRESS [Concomitant]
     Route: 065

REACTIONS (1)
  - Angina pectoris [Recovered/Resolved]
